FAERS Safety Report 19260333 (Version 4)
Quarter: 2021Q2

REPORT INFORMATION
  Report Type: Spontaneous
  Country: SA (occurrence: SA)
  Receive Date: 20210514
  Receipt Date: 20210528
  Transmission Date: 20210717
  Serious: Yes (Death, Other)
  Sender: FDA-Public Use
  Company Number: NVSC2021SA075638

PATIENT
  Age: 48 Year
  Sex: Male

DRUGS (1)
  1. KYMRIAH [Suspect]
     Active Substance: TISAGENLECLEUCEL
     Indication: DIFFUSE LARGE B-CELL LYMPHOMA
     Dosage: UNK
     Route: 065
     Dates: start: 20210325, end: 20210325

REACTIONS (21)
  - Hypotension [Fatal]
  - Hypoxia [Fatal]
  - Blood lactate dehydrogenase increased [Fatal]
  - Swelling face [Recovered/Resolved]
  - Serum ferritin increased [Fatal]
  - Diffuse large B-cell lymphoma [Fatal]
  - Cytokine release syndrome [Recovered/Resolved]
  - White blood cell count abnormal [Unknown]
  - Interleukin level increased [Fatal]
  - Blood culture positive [Fatal]
  - Hypotension [Recovered/Resolved]
  - Supraventricular tachycardia [Recovered/Resolved]
  - Cytokine release syndrome [Fatal]
  - Sepsis [Fatal]
  - Haemophagocytic lymphohistiocytosis [Fatal]
  - Pyrexia [Recovered/Resolved]
  - Platelet count abnormal [Unknown]
  - Malignant neoplasm progression [Fatal]
  - Multiple organ dysfunction syndrome [Fatal]
  - Enterococcal bacteraemia [Unknown]
  - Haemoglobin abnormal [Unknown]

NARRATIVE: CASE EVENT DATE: 20210327
